FAERS Safety Report 6864049-1 (Version None)
Quarter: 2010Q3

REPORT INFORMATION
  Report Type: 
  Country: None (occurrence: None)
  Receive Date: 20100721
  Receipt Date: 20080512
  Transmission Date: 20110219
  Serious: No
  Sender: FDA-Public Use
  Company Number: US-PFIZER INC-2008022791

PATIENT
  Sex: Male
  Weight: 84.09 kg

DRUGS (7)
  1. CHANTIX [Suspect]
     Indication: SMOKING CESSATION THERAPY
     Dates: start: 20080301
  2. ALCOHOL [Suspect]
     Dates: start: 20080305
  3. LIPITOR [Concomitant]
  4. ATENOLOL [Concomitant]
  5. MULTI-VITAMINS [Concomitant]
  6. ACETYLSALICYLIC ACID [Concomitant]
  7. VITAMIN C [Concomitant]

REACTIONS (5)
  - ABNORMAL DREAMS [None]
  - MIDDLE INSOMNIA [None]
  - POLLAKIURIA [None]
  - RESTLESSNESS [None]
  - SLEEP DISORDER [None]
